FAERS Safety Report 8439084-2 (Version None)
Quarter: 2012Q2

REPORT INFORMATION
  Report Type: 
  Country: None (occurrence: None)
  Receive Date: 20120615
  Receipt Date: 20120606
  Transmission Date: 20120825
  Serious: Yes (Hospitalization)
  Sender: FDA-Public Use
  Company Number: IT-NOVOPROD-353417

PATIENT
  Age: 71 Year
  Sex: Male

DRUGS (1)
  1. VICTOZA [Suspect]
     Indication: TYPE 2 DIABETES MELLITUS
     Dosage: 1.8 MG, QD
     Route: 058
     Dates: start: 20110615, end: 20120606

REACTIONS (5)
  - ABDOMINAL PAIN UPPER [None]
  - HYPERLIPASAEMIA [None]
  - HYPERAMYLASAEMIA [None]
  - JAUNDICE [None]
  - ABDOMINAL PAIN [None]
